FAERS Safety Report 8229213-8 (Version None)
Quarter: 2012Q1

REPORT INFORMATION
  Report Type: 
  Country: None (occurrence: None)
  Receive Date: 20120322
  Receipt Date: 20120312
  Transmission Date: 20120608
  Serious: Yes (Hospitalization)
  Sender: FDA-Public Use
  Company Number: JP-BRISTOL-MYERS SQUIBB COMPANY-16448805

PATIENT
  Age: 60 Year
  Sex: Male

DRUGS (3)
  1. WARFARIN SODIUM [Interacting]
     Indication: ACUTE MYOCARDIAL INFARCTION
     Dosage: DOSE REDUCED TO 2MG,INTERRUPTED,RESTARTED WITH 2MG,ANTICOAGULATION
     Dates: start: 20080501
  2. ASPIRIN [Suspect]
  3. SORAFENIB [Interacting]
     Indication: HEPATIC NEOPLASM MALIGNANT
     Dosage: AFTER 14 AND 63 DAYS LATER INCREASED TO 400MG AND 600MG,INTERRUPTED,RESTARTED WITH 200MG
     Dates: start: 20100801

REACTIONS (2)
  - DRUG INTERACTION [None]
  - GASTROINTESTINAL HAEMORRHAGE [None]
